FAERS Safety Report 6083151-8 (Version None)
Quarter: 2009Q1

REPORT INFORMATION
  Report Type: 
  Country: None (occurrence: None)
  Receive Date: 20090213
  Receipt Date: 20090213
  Transmission Date: 20090719
  Serious: No
  Sender: FDA-Public Use
  Company Number: None

PATIENT
  Sex: Male

DRUGS (1)
  1. OXYBUTYNIN ER [Suspect]
     Dosage: 15 MG DAILY PO
     Route: 048
     Dates: start: 20080101

REACTIONS (4)
  - DRUG EFFECT DECREASED [None]
  - POLLAKIURIA [None]
  - URINARY INCONTINENCE [None]
  - URINE FLOW DECREASED [None]
